FAERS Safety Report 19976521 (Version 3)
Quarter: 2022Q2

REPORT INFORMATION
  Report Type: Report from Study
  Country: US (occurrence: US)
  Receive Date: 20211021
  Receipt Date: 20220525
  Transmission Date: 20220720
  Serious: No
  Sender: FDA-Public Use
  Company Number: US-IPSEN BIOPHARMACEUTICALS, INC.-2021-25281

PATIENT
  Age: 63 Year
  Sex: Female

DRUGS (1)
  1. SOMATULINE DEPOT [Suspect]
     Active Substance: LANREOTIDE ACETATE
     Indication: Carcinoid tumour
     Dosage: 120 MG EVERY 4 WEEKS (BUTTOCKS, DEEP SUBCUTANEOUS)
     Route: 058
     Dates: start: 2013

REACTIONS (4)
  - Abdominal pain [Recovered/Resolved]
  - Flatulence [Recovering/Resolving]
  - Faeces pale [Recovered/Resolved]
  - Abdominal discomfort [Recovering/Resolving]
